FAERS Safety Report 18751227 (Version 1)
Quarter: 2021Q1

REPORT INFORMATION
  Report Type: Spontaneous
  Country: CN (occurrence: CN)
  Receive Date: 20210118
  Receipt Date: 20210118
  Transmission Date: 20210419
  Serious: Yes (Other)
  Sender: FDA-Public Use
  Company Number: CN-ROCHE-2750660

PATIENT
  Age: 68 Year
  Sex: Female

DRUGS (9)
  1. VINCRISTINE [Concomitant]
     Active Substance: VINCRISTINE
     Indication: DIFFUSE LARGE B-CELL LYMPHOMA STAGE IV
     Dates: start: 20201017
  2. CYCLOPHOSPHAMIDE. [Concomitant]
     Active Substance: CYCLOPHOSPHAMIDE
     Dates: start: 20201107
  3. VINCRISTINE [Concomitant]
     Active Substance: VINCRISTINE
     Dates: start: 20201107
  4. DOXORUBICIN [Concomitant]
     Active Substance: DOXORUBICIN
     Dates: start: 20201107
  5. MABTHERA [Suspect]
     Active Substance: RITUXIMAB
     Indication: DIFFUSE LARGE B-CELL LYMPHOMA STAGE IV
     Dosage: NEXT DOSE WAS RECEIVED ON 07/NOV/2020
     Route: 065
     Dates: start: 20201017
  6. PREDNISONE. [Concomitant]
     Active Substance: PREDNISONE
     Dates: start: 20201107
  7. CYCLOPHOSPHAMIDE. [Concomitant]
     Active Substance: CYCLOPHOSPHAMIDE
     Indication: DIFFUSE LARGE B-CELL LYMPHOMA STAGE IV
     Dates: start: 20201017
  8. DOXORUBICIN [Concomitant]
     Active Substance: DOXORUBICIN
     Indication: DIFFUSE LARGE B-CELL LYMPHOMA STAGE IV
     Dates: start: 20201017
  9. PREDNISONE. [Concomitant]
     Active Substance: PREDNISONE
     Indication: DIFFUSE LARGE B-CELL LYMPHOMA STAGE IV
     Dates: start: 20201017

REACTIONS (11)
  - Venous thrombosis limb [Unknown]
  - Tremor [Unknown]
  - Pneumonia [Unknown]
  - Altered state of consciousness [Unknown]
  - Therapeutic response delayed [Unknown]
  - Bronchial mucosa hyperaemia [Unknown]
  - Bronchial oedema [Unknown]
  - Coma [Unknown]
  - Pyrexia [Unknown]
  - Hypoxia [Unknown]
  - Respiratory failure [Unknown]
